FAERS Safety Report 9837291 (Version 2)
Quarter: 2014Q2

REPORT INFORMATION
  Report Type: Spontaneous
  Country: US (occurrence: None)
  Receive Date: 20131205
  Receipt Date: 20140416
  Transmission Date: 20141212
  Serious: Yes (Other)
  Sender: FDA-Public Use
  Company Number: 163-POMAL-13100922

PATIENT
  Age: 70 Year
  Sex: Male

DRUGS (1)
  1. POMALYST [Suspect]
     Indication: PLASMA CELL MYELOMA
     Route: 048
     Dates: start: 201308

REACTIONS (8)
  - Visual acuity reduced [None]
  - Stomatitis [None]
  - Gait disturbance [None]
  - Hypoaesthesia [None]
  - Vomiting [None]
  - Peripheral swelling [None]
  - Neuropathy peripheral [None]
  - Fatigue [None]
